FAERS Safety Report 5381971-6 (Version None)
Quarter: 2007Q3

REPORT INFORMATION
  Report Type: 
  Country: None (occurrence: None)
  Receive Date: 20070709
  Receipt Date: 20070706
  Transmission Date: 20080115
  Serious: Yes (Death)
  Sender: FDA-Public Use
  Company Number: A0662216A

PATIENT
  Age: 75 Year
  Sex: Female
  Weight: 70 kg

DRUGS (3)
  1. SERETIDE [Suspect]
     Indication: PULMONARY FIBROSIS
     Route: 055
     Dates: start: 20070429, end: 20070626
  2. METICORTEN [Concomitant]
     Dosage: 5TAB PER DAY
     Route: 048
     Dates: start: 19990101, end: 20070626
  3. CALCITONIN-SALMON [Concomitant]
     Dates: start: 20030101, end: 20070626

REACTIONS (1)
  - DEATH [None]
